FAERS Safety Report 23838183 (Version 3)
Quarter: 2024Q2

REPORT INFORMATION
  Report Type: Spontaneous
  Country: SI (occurrence: SI)
  Receive Date: 20240509
  Receipt Date: 20240522
  Transmission Date: 20240716
  Serious: Yes (Hospitalization, Other)
  Sender: FDA-Public Use
  Company Number: None

PATIENT
  Age: 67 Year
  Sex: Female

DRUGS (18)
  1. JANUMET [Suspect]
     Active Substance: METFORMIN HYDROCHLORIDE\SITAGLIPTIN PHOSPHATE
     Indication: Type 2 diabetes mellitus
     Dosage: STRENGTH: 50 MG/1000 MG DOSES: 2X1
  2. FUROSEMIDE\SPIRONOLACTONE [Suspect]
     Active Substance: FUROSEMIDE\SPIRONOLACTONE
     Indication: Chronic kidney disease
     Dosage: 2X 2 TBL DAILY, INCREASED DOSE ON MARCH 28
     Dates: start: 20240328, end: 20240408
  3. AMLODIPINE BESYLATE [Concomitant]
     Active Substance: AMLODIPINE BESYLATE
     Indication: Ischaemic cardiomyopathy
     Dosage: 10 MILLIGRAM (1X1)
  4. CHOLECALCIFEROL [Concomitant]
     Active Substance: CHOLECALCIFEROL
     Indication: Vitamin supplementation
     Dosage: STRENGTH: 14400 IU/ML DOSES: 35 GTT/ON SATURDAYS
  5. ULTOP [OMEPRAZOLE] [Concomitant]
     Indication: Haemorrhage prophylaxis
     Dosage: 1 CAP IN THE MORNING
  6. ACETAMINOPHEN [Concomitant]
     Active Substance: ACETAMINOPHEN
     Indication: Pain
     Dosage: UP TO 3X A DAY 2 TBL
  7. ROSUVASTATIN CALCIUM [Concomitant]
     Active Substance: ROSUVASTATIN CALCIUM
     Indication: Hyperlipidaemia
     Dosage: 1 TBL IN THE MORNING
  8. ROSUVASTATIN CALCIUM [Concomitant]
     Active Substance: ROSUVASTATIN CALCIUM
     Indication: Ischaemic cardiomyopathy
  9. XARELTO [Concomitant]
     Active Substance: RIVAROXABAN
     Indication: Atrial fibrillation
     Dosage: 1X1
  10. BISOPROLOL FUMARATE [Concomitant]
     Active Substance: BISOPROLOL FUMARATE
     Indication: Cardiac failure
     Dosage: 1 TBL IN THE MORNING
  11. MAGNESOL [MAGNESIUM CARBONATE;MAGNESIUM CHLORIDE;ZINC OXIDE] [Concomitant]
     Indication: Mineral supplementation
     Dosage: 1 TBL IN THE MORNING
  12. FENOTEROL HYDROBROMIDE\IPRATROPIUM BROMIDE [Concomitant]
     Active Substance: FENOTEROL HYDROBROMIDE\IPRATROPIUM BROMIDE
     Indication: Chronic obstructive pulmonary disease
     Dosage: STRENGTH: 0.05 MG/0.02 MG DOSE: 2X IF NECESSARY
  13. FENOTEROL HYDROBROMIDE\IPRATROPIUM BROMIDE [Concomitant]
     Active Substance: FENOTEROL HYDROBROMIDE\IPRATROPIUM BROMIDE
     Indication: Dyspnoea
  14. ALVESCO [Concomitant]
     Active Substance: CICLESONIDE
     Indication: Chronic obstructive pulmonary disease
     Dosage: STRENGTH: 160 MICROGRAMS DOSES: 2X1
  15. LOKELMA [Concomitant]
     Active Substance: SODIUM ZIRCONIUM CYCLOSILICATE
     Indication: Metabolic acidosis
     Dosage: SERVINGS: 3X10G
  16. LOKELMA [Concomitant]
     Active Substance: SODIUM ZIRCONIUM CYCLOSILICATE
     Indication: Hyperkalaemia
  17. SODIUM BICARBONATE [Concomitant]
     Active Substance: SODIUM BICARBONATE
     Indication: Chronic kidney disease
     Dosage: STRENGTH: 500 MG DOSE: 3X1G
  18. SODIUM BICARBONATE [Concomitant]
     Active Substance: SODIUM BICARBONATE
     Indication: Metabolic acidosis

REACTIONS (1)
  - Chronic kidney disease [Recovering/Resolving]
